FAERS Safety Report 7299515-0 (Version None)
Quarter: 2011Q1

REPORT INFORMATION
  Report Type: 
  Country: None (occurrence: None)
  Receive Date: 20110217
  Receipt Date: 20110214
  Transmission Date: 20110831
  Serious: Yes (Death)
  Sender: FDA-Public Use
  Company Number: US-ELI_LILLY_AND_COMPANY-US201102003906

PATIENT
  Sex: Male

DRUGS (3)
  1. STRATTERA [Suspect]
     Dosage: 40 MG, UNK
  2. STRATTERA [Suspect]
     Dosage: 60 MG, UNK
  3. STRATTERA [Suspect]
     Dosage: 80 MG, UNK

REACTIONS (1)
  - DEATH [None]
